FAERS Safety Report 23345461 (Version 1)
Quarter: 2023Q4

REPORT INFORMATION
  Report Type: Report from Study
  Country: EG (occurrence: EG)
  Receive Date: 20231228
  Receipt Date: 20231228
  Transmission Date: 20240110
  Serious: Yes (Hospitalization, Disabling, Other)
  Sender: FDA-Public Use
  Company Number: EG-002147023-NVSC2023EG274195

PATIENT
  Sex: Female

DRUGS (2)
  1. GILENYA [Suspect]
     Active Substance: FINGOLIMOD HYDROCHLORIDE
     Indication: Multiple sclerosis
     Dosage: 1 DOSAGE FORM, QD
     Route: 048
     Dates: start: 2019, end: 2021
  2. TRI B [Concomitant]
     Indication: Vitamin supplementation
     Dosage: ONE INJECTION EVERY THREE DAYS (FOR 4 OR 5 TIMES ONLY), IT 1- 3 YEARS AGO (SHE CANNOT REMEMBER EXACT
     Route: 030

REACTIONS (6)
  - Memory impairment [Not Recovered/Not Resolved]
  - Coma [Recovered/Resolved]
  - Loss of consciousness [Recovered/Resolved]
  - Haemoglobin decreased [Unknown]
  - Dizziness [Not Recovered/Not Resolved]
  - Syncope [Not Recovered/Not Resolved]

NARRATIVE: CASE EVENT DATE: 20190101
